FAERS Safety Report 6583187-4 (Version None)
Quarter: 2010Q1

REPORT INFORMATION
  Report Type: 
  Country: None (occurrence: None)
  Receive Date: 20100216
  Receipt Date: 20100202
  Transmission Date: 20100710
  Serious: Yes (Hospitalization)
  Sender: FDA-Public Use
  Company Number: US-ROCHE-684991

PATIENT
  Sex: Female

DRUGS (17)
  1. TRASTUZUMAB [Suspect]
     Dosage: DOSE: 90MG/M2.
     Route: 042
     Dates: start: 20061103
  2. TRASTUZUMAB [Suspect]
     Dosage: DOSE FORM: SOLUTION FOR INFUSION, FREQUENCY: ONCE.
     Route: 042
     Dates: start: 20070404
  3. LAROTAXEL [Suspect]
     Dosage: TOTAL DAILY DOSE: 90 MG/M2, FORM: SOLUTION FOR INFUSION, THERAPY DURATION:1 DAY.
     Route: 042
     Dates: start: 20070328
  4. ARANESP [Concomitant]
  5. NEUMEGA [Concomitant]
  6. NEUPOGEN [Concomitant]
  7. LEVAQUIN [Concomitant]
  8. ROCEPHIN [Concomitant]
  9. BACTRIM [Concomitant]
  10. DIFLUCAN [Concomitant]
  11. MAALOX [Concomitant]
  12. AREDIA [Concomitant]
  13. ZOMETA [Concomitant]
  14. REGLAN [Concomitant]
  15. DIPHENHYDRAMINE [Concomitant]
  16. SOLU-MEDRONE [Concomitant]
  17. MAGIC MOUTHWASH (DIPHENHYDRAMINE/PREDNISONE/NYSTATIN) [Concomitant]

REACTIONS (1)
  - PLEURAL EFFUSION [None]
